FAERS Safety Report 17507759 (Version 1)
Quarter: 2020Q1

REPORT INFORMATION
  Report Type: Spontaneous
  Country: US (occurrence: US)
  Receive Date: 20200225
  Receipt Date: 20200225
  Transmission Date: 20200409
  Serious: Yes (Hospitalization)
  Sender: FDA-Public Use
  Company Number: None

PATIENT
  Age: 23 Year
  Sex: Female

DRUGS (5)
  1. AZITHROMYCIN ANHYDROUS. [Concomitant]
     Active Substance: AZITHROMYCIN ANHYDROUS
  2. METRONIDAZOL [Concomitant]
     Active Substance: METRONIDAZOLE
  3. NITROFURANTIN [Concomitant]
     Active Substance: NITROFURANTOIN
  4. MAKENA [Suspect]
     Active Substance: HYDROXYPROGESTERONE CAPROATE
     Indication: PREGNANCY
     Route: 058
     Dates: start: 20191119
  5. ALBUTEROL. [Concomitant]
     Active Substance: ALBUTEROL

REACTIONS (4)
  - Exposure during pregnancy [None]
  - Discomfort [None]
  - Bacterial infection [None]
  - Muscle spasms [None]

NARRATIVE: CASE EVENT DATE: 20200217
